FAERS Safety Report 19322532 (Version 2)
Quarter: 2021Q2

REPORT INFORMATION
  Report Type: Spontaneous
  Country: DE (occurrence: DE)
  Receive Date: 20210528
  Receipt Date: 20210623
  Transmission Date: 20210717
  Serious: Yes (Hospitalization, Other)
  Sender: FDA-Public Use
  Company Number: DE-ROCHE-2835351

PATIENT
  Age: 34 Year
  Sex: Female
  Weight: 54 kg

DRUGS (6)
  1. OCREVUS [Suspect]
     Active Substance: OCRELIZUMAB
     Route: 042
     Dates: start: 20210127
  2. DEKRISTOL [Concomitant]
     Active Substance: CHOLECALCIFEROL
     Indication: VITAMIN D DEFICIENCY
     Dosage: IN EXCHANGE WITH VIGANTOL, 1000?2000 IU EVERY 1?2 DAYS
  3. VITAMIN K 2 [Concomitant]
     Dosage: 200?300 MICROGM 1?2 TIMES PER WEEK
  4. VIGANTOL [Concomitant]
     Indication: VITAMIN D DEFICIENCY
     Dosage: IN EXCHANGE WITH DEKRISTOL, 1000?2000 IU EVERY 1?2 DAYS
  5. OCREVUS [Suspect]
     Active Substance: OCRELIZUMAB
     Indication: MULTIPLE SCLEROSIS
     Route: 042
     Dates: start: 20190127
  6. CALCIUM [Concomitant]
     Active Substance: CALCIUM
     Dosage: 1?2 TIMES PER WEEK

REACTIONS (7)
  - Neisseria infection [Unknown]
  - Haemophilus infection [Recovered/Resolved]
  - Meningococcal infection [Unknown]
  - Streptococcal infection [Unknown]
  - Bronchitis [Unknown]
  - COVID-19 [Recovered/Resolved]
  - Pneumonia [Recovered/Resolved]

NARRATIVE: CASE EVENT DATE: 20210412
